FAERS Safety Report 17102651 (Version 2)
Quarter: 2019Q4

REPORT INFORMATION
  Report Type: Report from Study
  Country: None (occurrence: BR)
  Receive Date: 20191202
  Receipt Date: 20191204
  Transmission Date: 20200122
  Serious: Yes (Hospitalization, Other)
  Sender: FDA-Public Use
  Company Number: BR-ABBVIE-19K-020-3174977-00

PATIENT
  Sex: Male
  Weight: 84 kg

DRUGS (1)
  1. HUMIRA [Suspect]
     Active Substance: ADALIMUMAB
     Indication: PSORIASIS
     Route: 058
     Dates: end: 201910

REACTIONS (4)
  - Cyst [Unknown]
  - Chronic sinusitis [Recovering/Resolving]
  - Nephrolithiasis [Unknown]
  - Kidney infection [Recovering/Resolving]
